FAERS Safety Report 5330179-9 (Version None)
Quarter: 2007Q2

REPORT INFORMATION
  Report Type: 
  Country: None (occurrence: None)
  Receive Date: 20070521
  Receipt Date: 20070515
  Transmission Date: 20071010
  Serious: Yes (Other)
  Sender: FDA-Public Use
  Company Number: US-BRISTOL-MYERS SQUIBB COMPANY-13784566

PATIENT
  Age: 58 Year
  Sex: Male
  Weight: 126 kg

DRUGS (19)
  1. TEQUIN [Suspect]
     Indication: RESPIRATORY TRACT INFECTION
     Dates: start: 20050630, end: 20050710
  2. ALBUTEROL [Concomitant]
     Indication: INHALATION THERAPY
     Route: 055
  3. CALCIUM + VITAMIN D [Concomitant]
     Indication: MINERAL SUPPLEMENTATION
     Route: 048
  4. DOCUSATE [Concomitant]
     Indication: CONSTIPATION
     Route: 048
  5. FERROUS SULFATE TAB [Concomitant]
     Indication: MINERAL SUPPLEMENTATION
     Route: 048
  6. FUROSEMIDE [Concomitant]
     Indication: DIURETIC THERAPY
     Route: 048
  7. GABAPENTIN [Concomitant]
     Indication: PAIN
     Route: 048
  8. GUAIFENESIN [Concomitant]
     Route: 048
  9. IPRATROPIUM BROMIDE [Concomitant]
     Indication: INHALATION THERAPY
     Route: 055
  10. LISINOPRIL [Concomitant]
     Indication: BLOOD PRESSURE
     Route: 048
  11. METHADONE HCL [Concomitant]
     Indication: PAIN
     Route: 048
  12. VITAMIN CAP [Concomitant]
     Indication: NUTRITIONAL SUPPORT
     Route: 048
  13. OMEPRAZOLE [Concomitant]
     Route: 048
  14. POLYETHYLENE GLYCOL [Concomitant]
     Indication: LAXATIVE SUPPORTIVE CARE
  15. POTASSIUM CHLORIDE [Concomitant]
     Indication: MINERAL SUPPLEMENTATION
     Route: 048
  16. PREDNISONE TAB [Concomitant]
     Indication: INFLAMMATION
     Route: 048
  17. SENNOSIDES [Concomitant]
     Indication: LAXATIVE SUPPORTIVE CARE
     Route: 048
  18. SODIUM CHLORIDE [Concomitant]
     Indication: NASAL DRYNESS
     Route: 045
  19. TRIAMCINOLONE ACETONIDE [Concomitant]
     Route: 061

REACTIONS (2)
  - DIABETES MELLITUS [None]
  - HYPERGLYCAEMIA [None]
